FAERS Safety Report 13445796 (Version 1)
Quarter: 2017Q2

REPORT INFORMATION
  Report Type: Spontaneous
  Country: DK (occurrence: DK)
  Receive Date: 20170416
  Receipt Date: 20170416
  Transmission Date: 20170830
  Serious: Yes (Life-Threatening, Hospitalization, Disabling, Other)
  Sender: FDA-Public Use
  Company Number: DK-BAXTER-2014BAX036391

PATIENT
  Sex: Male

DRUGS (7)
  1. IFOSFAMID A-PHARMA [Suspect]
     Active Substance: IFOSFAMIDE
     Indication: CHEMOTHERAPY
     Route: 065
     Dates: start: 201102, end: 20110511
  2. ONCOVIN [Suspect]
     Active Substance: VINCRISTINE SULFATE
     Indication: CHEMOTHERAPY
     Route: 065
     Dates: start: 20100809, end: 20110511
  3. HOLOXAN [Suspect]
     Active Substance: IFOSFAMIDE
     Indication: CHEMOTHERAPY
     Route: 065
     Dates: start: 20100809, end: 201101
  4. DOXORUBICIN [Suspect]
     Active Substance: DOXORUBICIN
     Indication: CHEMOTHERAPY
     Route: 065
     Dates: start: 20100809, end: 20101123
  5. ACTINOMYCIN D [Suspect]
     Active Substance: DACTINOMYCIN
     Indication: CHEMOTHERAPY
     Route: 065
     Dates: start: 20110112, end: 20110511
  6. ETOPOSIDE. [Suspect]
     Active Substance: ETOPOSIDE
     Indication: CHEMOTHERAPY
     Route: 065
     Dates: start: 20100809, end: 20101123
  7. UROMITEXAN [Suspect]
     Active Substance: MESNA
     Indication: CHEMOTHERAPY
     Route: 065
     Dates: start: 20100809, end: 20110511

REACTIONS (3)
  - Mental disorder [Unknown]
  - Renal impairment [Unknown]
  - Cardiac disorder [Unknown]

NARRATIVE: CASE EVENT DATE: 2012
